FAERS Safety Report 5671734-6 (Version None)
Quarter: 2008Q2

REPORT INFORMATION
  Report Type: 
  Country: None (occurrence: None)
  Receive Date: 20080228
  Receipt Date: 20071228
  Transmission Date: 20081010
  Serious: No
  Sender: FDA-Public Use
  Company Number: PHEH2007US16196

PATIENT
  Age: 63 Year
  Sex: Male

DRUGS (7)
  1. TASIGNA [Suspect]
     Indication: ACUTE LYMPHOCYTIC LEUKAEMIA RECURRENT
     Dosage: 400 MG, BID, ORAL
     Route: 048
     Dates: start: 20071222
  2. ACYCLOVIR [Concomitant]
  3. CASPOFUNGIN (CASPOFUNGIN) [Concomitant]
  4. CEFTAZIDIME [Concomitant]
  5. VANCOMYCIN [Concomitant]
  6. FLAGYL [Concomitant]
  7. BACTRIM [Concomitant]

REACTIONS (2)
  - PRURITUS [None]
  - RASH [None]
